FAERS Safety Report 8004054-5 (Version None)
Quarter: 2011Q4

REPORT INFORMATION
  Report Type: 
  Country: None (occurrence: None)
  Receive Date: 20111222
  Receipt Date: 20111212
  Transmission Date: 20120403
  Serious: Yes (Death, Other)
  Sender: FDA-Public Use
  Company Number: ES-MILLENNIUM PHARMACEUTICALS, INC.-2011-06365

PATIENT

DRUGS (3)
  1. ADRIAMYCIN PFS [Concomitant]
     Indication: LEUKAEMIA PLASMACYTIC
  2. VELCADE [Suspect]
     Indication: LEUKAEMIA PLASMACYTIC
  3. DEXAMETHASONE [Concomitant]
     Indication: LEUKAEMIA PLASMACYTIC

REACTIONS (4)
  - OROPHARYNGEAL CANDIDIASIS [None]
  - CHOLANGITIS [None]
  - DEATH [None]
  - HERPES ZOSTER [None]
